FAERS Safety Report 14173012 (Version 1)
Quarter: 2017Q4

REPORT INFORMATION
  Report Type: Spontaneous
  Country: US (occurrence: US)
  Receive Date: 20171109
  Receipt Date: 20171109
  Transmission Date: 20180321
  Serious: Yes (Other)
  Sender: FDA-Public Use
  Company Number: US-AMGEN-USASP2017167863

PATIENT
  Sex: Female

DRUGS (1)
  1. ENBREL [Suspect]
     Active Substance: ETANERCEPT
     Indication: RHEUMATOID ARTHRITIS
     Dosage: UNK UNK, UNK
     Route: 065

REACTIONS (6)
  - Peripheral sensory neuropathy [Unknown]
  - Drug ineffective [Unknown]
  - Lipoma [Unknown]
  - Autoimmune disorder [Unknown]
  - Rheumatoid arthritis [Unknown]
  - Lipodystrophy acquired [Unknown]
